FAERS Safety Report 9701530 (Version 3)
Quarter: 2013Q4

REPORT INFORMATION
  Report Type: Report from Study
  Country: BE (occurrence: BE)
  Receive Date: 20131121
  Receipt Date: 20131218
  Transmission Date: 20140711
  Serious: Yes (Hospitalization)
  Sender: FDA-Public Use
  Company Number: BE-BAYER-2013-135499

PATIENT
  Age: 68 Year
  Sex: Male
  Weight: 65 kg

DRUGS (6)
  1. REGORAFENIB [Suspect]
     Indication: COLORECTAL CANCER
     Dosage: 160 MG, QD, ONCE A DAY FOR 3 WEEKS EVERY 4 WEEKS
     Route: 048
     Dates: start: 20131019, end: 20131104
  2. REGORAFENIB [Suspect]
     Indication: COLORECTAL CANCER
     Dosage: 120 MG
     Dates: start: 20131115
  3. IBUPROFEN [Concomitant]
     Indication: MUSCULOSKELETAL STIFFNESS
     Dosage: 600 MG, BID
     Route: 048
     Dates: start: 20131019
  4. PANTOPRAZOLE [Concomitant]
     Indication: PROPHYLAXIS
     Dosage: 40 MG, QD
     Route: 048
     Dates: start: 20131024
  5. ZALDIAR [Concomitant]
     Indication: MUSCULOSKELETAL STIFFNESS
     Dosage: 325 MG, PRN
     Route: 048
     Dates: start: 20131019
  6. AUGMENTIN [Concomitant]
     Indication: INFECTION PROPHYLAXIS
     Dosage: UNK, MG, BID
     Dates: start: 20131104, end: 20131114

REACTIONS (3)
  - Pulmonary embolism [Recovered/Resolved]
  - Pyrexia [Recovered/Resolved]
  - Palmar-plantar erythrodysaesthesia syndrome [Recovered/Resolved]
